FAERS Safety Report 13622166 (Version 2)
Quarter: 2017Q3

REPORT INFORMATION
  Report Type: Spontaneous
  Country: BR (occurrence: BR)
  Receive Date: 20170607
  Receipt Date: 20170724
  Transmission Date: 20171127
  Serious: Yes (Life-Threatening, Hospitalization, Other)
  Sender: FDA-Public Use
  Company Number: BR-ELI_LILLY_AND_COMPANY-BR201706000897

PATIENT
  Age: 53 Year
  Sex: Male

DRUGS (2)
  1. ZYPREXA [Suspect]
     Active Substance: OLANZAPINE
     Indication: ANXIETY
  2. ZYPREXA [Suspect]
     Active Substance: OLANZAPINE
     Indication: DEPRESSION
     Dosage: UNK, UNKNOWN
     Route: 065

REACTIONS (14)
  - Impaired healing [Unknown]
  - Fibrosis [Unknown]
  - Urinary tract infection [Unknown]
  - Tremor [Unknown]
  - Headache [Unknown]
  - Neuroleptic malignant syndrome [Unknown]
  - Memory impairment [Unknown]
  - Movement disorder [Not Recovered/Not Resolved]
  - Tracheal stenosis [Unknown]
  - Cardio-respiratory arrest [Unknown]
  - Speech disorder [Not Recovered/Not Resolved]
  - Coma [Unknown]
  - Pneumonia [Unknown]
  - Off label use [Unknown]

NARRATIVE: CASE EVENT DATE: 2013
